FAERS Safety Report 25173530 (Version 5)
Quarter: 2025Q2

REPORT INFORMATION
  Report Type: Spontaneous
  Country: US (occurrence: US)
  Receive Date: 20250408
  Receipt Date: 20250520
  Transmission Date: 20250717
  Serious: No
  Sender: PFIZER
  Company Number: US-PFIZER INC-202500071287

PATIENT
  Age: 4 Year
  Sex: Female

DRUGS (1)
  1. GENOTROPIN [Suspect]
     Active Substance: SOMATROPIN
     Dosage: 0.4 MG, DAILY (7 DAYS/WEEK)
     Dates: start: 202409

REACTIONS (2)
  - Drug dose omission by device [Unknown]
  - Device difficult to use [Unknown]

NARRATIVE: CASE EVENT DATE: 20250401
